FAERS Safety Report 19431550 (Version 2)
Quarter: 2021Q3

REPORT INFORMATION
  Report Type: Report from Study
  Country: US (occurrence: US)
  Receive Date: 20210618
  Receipt Date: 20210726
  Transmission Date: 20211014
  Serious: Yes (Other)
  Sender: FDA-Public Use
  Company Number: US-BIOGEN-2021BI01021141

PATIENT
  Sex: Female

DRUGS (1)
  1. TECFIDERA [Suspect]
     Active Substance: DIMETHYL FUMARATE
     Indication: MULTIPLE SCLEROSIS
     Route: 048
     Dates: start: 20191230

REACTIONS (5)
  - Bronchitis [Unknown]
  - Breast cancer female [Recovered/Resolved]
  - VIIIth nerve injury [Unknown]
  - Memory impairment [Unknown]
  - Tympanic membrane disorder [Unknown]
